FAERS Safety Report 8291298-0 (Version None)
Quarter: 2012Q2

REPORT INFORMATION
  Report Type: 
  Country: None (occurrence: None)
  Receive Date: 20120417
  Receipt Date: 20120402
  Transmission Date: 20120825
  Serious: Yes (Hospitalization)
  Sender: FDA-Public Use
  Company Number: US-WATSON-2012-06079

PATIENT
  Age: 34 Year
  Sex: Female

DRUGS (3)
  1. CHLORAL HYDRATE [Suspect]
     Indication: INTENTIONAL OVERDOSE
     Dosage: UNK
     Route: 065
  2. OXYCODONE HCL AND ACETAMINOPHEN [Suspect]
     Indication: INTENTIONAL OVERDOSE
     Dosage: UNK
     Route: 065
  3. QUETIAPINE FUMARATE [Suspect]
     Indication: INTENTIONAL OVERDOSE
     Dosage: UNK
     Route: 065

REACTIONS (11)
  - MYELOPATHY [None]
  - DRUG LEVEL ABOVE THERAPEUTIC [None]
  - TRANSAMINASES INCREASED [None]
  - ELECTROCARDIOGRAM QT PROLONGED [None]
  - UNRESPONSIVE TO STIMULI [None]
  - HEPATIC FUNCTION ABNORMAL [None]
  - RENAL FAILURE [None]
  - ANAEMIA [None]
  - LEUKOPENIA [None]
  - MULTIPLE DRUG OVERDOSE INTENTIONAL [None]
  - QUADRIPARESIS [None]
